FAERS Safety Report 6801521-4 (Version None)
Quarter: 2010Q2

REPORT INFORMATION
  Report Type: 
  Country: None (occurrence: None)
  Receive Date: 20100629
  Receipt Date: 20100617
  Transmission Date: 20101027
  Serious: Yes (Hospitalization, Other)
  Sender: FDA-Public Use
  Company Number: US-ELI_LILLY_AND_COMPANY-US201006005139

PATIENT
  Sex: Female

DRUGS (7)
  1. FORTEO [Suspect]
     Indication: OSTEOPOROSIS
     Dosage: 20 UG, DAILY (1/D)
     Dates: start: 20100321
  2. ROCEPHIN [Concomitant]
     Dosage: UNK, DAILY (1/D)
     Route: 042
  3. FLAGYL [Concomitant]
     Dosage: UNK, 3/D
  4. AGRYLIN [Concomitant]
     Dosage: UNK, 3/D
  5. PERCOCET [Concomitant]
     Dosage: UNK, AS NEEDED
  6. COPAXONE [Concomitant]
     Dosage: UNK, DAILY (1/D)
  7. PROBIOTICA [Concomitant]

REACTIONS (7)
  - ABSCESS [None]
  - APPENDICITIS [None]
  - BLOOD PRESSURE DECREASED [None]
  - HEART RATE INCREASED [None]
  - HOSPITALISATION [None]
  - PLATELET COUNT INCREASED [None]
  - POST PROCEDURAL COMPLICATION [None]
